FAERS Safety Report 8760650 (Version 3)
Quarter: 2013Q4

REPORT INFORMATION
  Report Type: Spontaneous
  Country: US (occurrence: US)
  Receive Date: 20120830
  Receipt Date: 20131108
  Transmission Date: 20140711
  Serious: Yes (Hospitalization, Other)
  Sender: FDA-Public Use
  Company Number: US-009507513-2012SP013851

PATIENT
  Sex: Male

DRUGS (7)
  1. REBETOL [Suspect]
     Dosage: UNK UNK, UNKNOWN
     Route: 048
     Dates: start: 20070701, end: 20080707
  2. REBETOL [Suspect]
     Dosage: UNK UNK, UNKNOWN
     Route: 048
     Dates: start: 20120227
  3. REBETOL [Suspect]
     Dosage: UNK UNK, UNKNOWN
     Route: 048
     Dates: start: 20120306
  4. VICTRELIS [Suspect]
     Indication: HEPATITIS C
     Dosage: UNK UNK, UNKNOWN
     Route: 048
     Dates: start: 20120404
  5. PEGASYS [Concomitant]
     Indication: HEPATITIS C
     Dosage: UNK UNK, UNKNOWN
     Route: 065
     Dates: start: 20070701, end: 20080701
  6. PEGASYS [Concomitant]
     Dosage: UNK UNK, UNKNOWN
     Route: 065
     Dates: start: 20120227
  7. PEGASYS [Concomitant]
     Dosage: UNK UNK, UNKNOWN
     Route: 065
     Dates: start: 20120306

REACTIONS (32)
  - Hepatic encephalopathy [Unknown]
  - Upper gastrointestinal haemorrhage [Unknown]
  - Type 1 diabetes mellitus [Unknown]
  - Blood glucose increased [Unknown]
  - Ascites [Unknown]
  - Pancreatitis [Unknown]
  - Anaemia [Unknown]
  - Nausea [Unknown]
  - Dizziness [Unknown]
  - Abdominal pain upper [Unknown]
  - Abdominal pain [Unknown]
  - Hepatic pain [Unknown]
  - Varices oesophageal [Unknown]
  - Volume blood decreased [Unknown]
  - Platelet transfusion [Unknown]
  - Oedema [Unknown]
  - Kidney infection [Unknown]
  - Cystitis [Unknown]
  - Contusion [Unknown]
  - Hyponatraemia [Unknown]
  - Fatigue [Unknown]
  - Pruritus [Unknown]
  - Drug ineffective [Unknown]
  - Lethargy [Unknown]
  - Muscle spasms [Unknown]
  - Muscular weakness [Unknown]
  - Solar lentigo [Unknown]
  - Liver disorder [Unknown]
  - Asthenia [Unknown]
  - Asthenia [Unknown]
  - Asthenia [Unknown]
  - Kidney infection [Unknown]
